FAERS Safety Report 6288772-5 (Version None)
Quarter: 2009Q3

REPORT INFORMATION
  Report Type: 
  Country: None (occurrence: None)
  Receive Date: 20090729
  Receipt Date: 20090727
  Transmission Date: 20100115
  Serious: Yes (Death)
  Sender: FDA-Public Use
  Company Number: PHEH2009US05536

PATIENT
  Sex: Male

DRUGS (1)
  1. GLEEVEC [Suspect]
     Indication: CHRONIC MYELOID LEUKAEMIA
     Dosage: 600 MG, QD
     Route: 048
     Dates: start: 20080411

REACTIONS (6)
  - CONCOMITANT DISEASE PROGRESSION [None]
  - DISEASE RECURRENCE [None]
  - GASTROINTESTINAL STROMAL TUMOUR [None]
  - METASTASES TO LIVER [None]
  - OBSTRUCTIVE UROPATHY [None]
  - PELVIC MASS [None]
